FAERS Safety Report 6436247-2 (Version None)
Quarter: 2009Q4

REPORT INFORMATION
  Report Type: 
  Country: None (occurrence: None)
  Receive Date: 20091111
  Receipt Date: 20091030
  Transmission Date: 20100525
  Serious: Yes (Other)
  Sender: FDA-Public Use
  Company Number: A0758985A

PATIENT
  Age: 35 Year
  Sex: Female

DRUGS (2)
  1. TYKERB [Suspect]
     Dosage: 1250MG PER DAY
     Route: 048
     Dates: start: 20071214, end: 20090901
  2. CAPECITABINE [Concomitant]
     Dosage: 825MGM2 PER DAY
     Dates: start: 20071001, end: 20081001

REACTIONS (16)
  - ASTIGMATISM [None]
  - BLOOD LACTATE DEHYDROGENASE ABNORMAL [None]
  - BONE SCAN [None]
  - COMPUTERISED TOMOGRAM [None]
  - DEMYELINATION [None]
  - DIARRHOEA [None]
  - HEADACHE [None]
  - HEPATIC ENZYME ABNORMAL [None]
  - HEPATOBILIARY DISEASE [None]
  - MYOPIA [None]
  - NUCLEAR MAGNETIC RESONANCE IMAGING [None]
  - PALMAR-PLANTAR ERYTHRODYSAESTHESIA SYNDROME [None]
  - PATHOLOGICAL FRACTURE [None]
  - RASH [None]
  - VISION BLURRED [None]
  - VOMITING [None]
